FAERS Safety Report 23630396 (Version 1)
Quarter: 2024Q1

REPORT INFORMATION
  Report Type: Spontaneous
  Country: HR (occurrence: HR)
  Receive Date: 20240314
  Receipt Date: 20240314
  Transmission Date: 20240409
  Serious: Yes (Hospitalization, Other)
  Sender: FDA-Public Use
  Company Number: None

PATIENT

DRUGS (5)
  1. COSMEGEN [Suspect]
     Active Substance: DACTINOMYCIN
     Indication: Nephroblastoma
     Dosage: 450 MICROGRAM, QD (IN COMBINATION WITH VINCRISTINE ACCORDING TO THE UMBRELLA SIOP 2016 PROTOCOL VACC
     Route: 042
     Dates: start: 20230715, end: 20230716
  2. COSMEGEN [Suspect]
     Active Substance: DACTINOMYCIN
     Dosage: 832 MICROGRAM, QD (IN COMBINATION WITH VINCRISTINE ACCORDING TO THE UMBRELLA SIOP 2016 PROTOCOL VACC
     Route: 042
     Dates: start: 20230729, end: 20230729
  3. COSMEGEN [Suspect]
     Active Substance: DACTINOMYCIN
     Dosage: 837 MICROGRAM, QD (POSTOP. CYCLE 9-APR-23 837 MCG CYCLE IN COMBINATION WITH VINCRISTINE ACCORDING TO
     Route: 042
     Dates: start: 20230904, end: 20230904
  4. VINCRISTINE [Suspect]
     Active Substance: VINCRISTINE
     Indication: Nephroblastoma
     Dosage: 1.2 MILLIGRAM, QW SOLUTION FOR INJECTION (15.7. (VCR 1,2 MG 22.7. 29.7. 5.8.23).
     Route: 042
     Dates: start: 20230715, end: 20230905
  5. VINCRISTINE [Suspect]
     Active Substance: VINCRISTINE
     Dosage: 1.1 MILLIGRAM, QW SOLUTION FOR INJECTION (28.8.23. VCR 1,1 MG 4.9.23)
     Route: 042
     Dates: start: 20230828, end: 20230904

REACTIONS (9)
  - Weight increased [Recovering/Resolving]
  - Fluid retention [Recovering/Resolving]
  - Abdominal pain upper [Recovering/Resolving]
  - Pleural effusion [Recovering/Resolving]
  - Thrombocytopenia [Recovering/Resolving]
  - Ascites [Recovering/Resolving]
  - Hepatomegaly [Recovering/Resolving]
  - Hyperbilirubinaemia [Recovering/Resolving]
  - Venoocclusive liver disease [Recovering/Resolving]

NARRATIVE: CASE EVENT DATE: 20230908
